FAERS Safety Report 6912795-3 (Version None)
Quarter: 2010Q3

REPORT INFORMATION
  Report Type: 
  Country: None (occurrence: None)
  Receive Date: 20100806
  Receipt Date: 20081211
  Transmission Date: 20110219
  Serious: No
  Sender: FDA-Public Use
  Company Number: US-PFIZER INC-2008152045

PATIENT
  Age: 77 Year
  Sex: Male

DRUGS (1)
  1. GLUCOTROL XL [Suspect]
     Dosage: 5 MG, UNK

REACTIONS (3)
  - BURNING SENSATION [None]
  - ERUCTATION [None]
  - GASTROOESOPHAGEAL REFLUX DISEASE [None]
